FAERS Safety Report 6385907-0 (Version None)
Quarter: 2009Q4

REPORT INFORMATION
  Report Type: 
  Country: None (occurrence: None)
  Receive Date: 20091002
  Receipt Date: 20090728
  Transmission Date: 20100525
  Serious: Yes (Other)
  Sender: FDA-Public Use
  Company Number: US-ASTRAZENECA-2009UW05842

PATIENT
  Age: 63 Year
  Sex: Female
  Weight: 61.2 kg

DRUGS (3)
  1. ARIMIDEX [Suspect]
     Indication: BREAST CANCER
     Route: 048
     Dates: start: 20050601
  2. ACTONEL [Concomitant]
     Route: 048
  3. ZETIA [Concomitant]
     Route: 048

REACTIONS (3)
  - BONE DENSITY DECREASED [None]
  - COMPRESSION FRACTURE [None]
  - GLYCOSYLATED HAEMOGLOBIN INCREASED [None]
